FAERS Safety Report 9715565 (Version 5)
Quarter: 2014Q1

REPORT INFORMATION
  Report Type: Spontaneous
  Country: US (occurrence: US)
  Receive Date: 20131127
  Receipt Date: 20140127
  Transmission Date: 20141002
  Serious: Yes (Hospitalization)
  Sender: FDA-Public Use
  Company Number: US-BIOGENIDEC-2013BI114421

PATIENT
  Sex: Female

DRUGS (6)
  1. TYSABRI [Suspect]
     Indication: MULTIPLE SCLEROSIS
     Route: 042
     Dates: start: 20111028
  2. AMITRIPTYLINE [Concomitant]
     Route: 048
  3. CITALOPRAM [Concomitant]
     Route: 048
  4. DOCUSATE [Concomitant]
     Route: 048
  5. GABAPENTIN [Concomitant]
  6. NORCO [Concomitant]

REACTIONS (10)
  - Muscular weakness [Unknown]
  - Hydronephrosis [Unknown]
  - Substance abuse [Unknown]
  - Gait disturbance [Unknown]
  - Back pain [Unknown]
  - Systemic inflammatory response syndrome [Recovered/Resolved]
  - Urinary tract infection [Recovered/Resolved]
  - Leukocytosis [Recovered/Resolved]
  - Hypokalaemia [Recovered/Resolved]
  - Urinary retention [Unknown]
